FAERS Safety Report 4370830-3 (Version None)
Quarter: 2004Q2

REPORT INFORMATION
  Report Type: 
  Country: None (occurrence: None)
  Receive Date: 20040602
  Receipt Date: 20040602
  Transmission Date: 20050107
  Serious: Yes (Hospitalization)
  Sender: FDA-Public Use
  Company Number: None

PATIENT
  Age: 60 Year
  Sex: Male
  Weight: 67.7 kg

DRUGS (13)
  1. IRBESARTAN [Suspect]
  2. SODIUM POLYSTYRENE SULFONATE SUSP [Concomitant]
  3. HUMULIN R [Concomitant]
  4. SIMVASTATIN [Concomitant]
  5. DIPHENHYDRAMINE HCL [Concomitant]
  6. SERTRALINE [Concomitant]
  7. CLOPIDOGREL BISULFATE [Concomitant]
  8. ATENOLOL [Concomitant]
  9. ASPIRIN [Concomitant]
  10. ACETAMINOPHEN [Concomitant]
  11. OXYCODONE AND ACETAMINOPHEN [Concomitant]
  12. CEPHALEXIN [Concomitant]
  13. CEFAZOLIN [Concomitant]

REACTIONS (1)
  - HYPERKALAEMIA [None]
